FAERS Safety Report 6017683-5 (Version None)
Quarter: 2008Q4

REPORT INFORMATION
  Report Type: 
  Country: None (occurrence: None)
  Receive Date: 20081223
  Receipt Date: 20081218
  Transmission Date: 20090506
  Serious: Yes (Hospitalization)
  Sender: FDA-Public Use
  Company Number: US-BAYER-200814821BCC

PATIENT
  Age: 68 Year
  Sex: Female
  Weight: 61 kg

DRUGS (2)
  1. ALKA-SELTZER PLUS COLD EFFERVESCENT ORIGINAL [Suspect]
     Indication: NASOPHARYNGITIS
     Route: 048
     Dates: start: 20081028, end: 20081028
  2. ADVAIR DISKUS 250/50 [Concomitant]

REACTIONS (3)
  - DYSPNOEA [None]
  - EXPIRED DRUG ADMINISTERED [None]
  - SPEECH DISORDER [None]
